FAERS Safety Report 5985155-X (Version None)
Quarter: 2008Q4

REPORT INFORMATION
  Report Type: 
  Country: None (occurrence: None)
  Receive Date: 20081208
  Receipt Date: 20081201
  Transmission Date: 20090506
  Serious: Yes (Death)
  Sender: FDA-Public Use
  Company Number: US-GILEAD-2008-0019284

PATIENT
  Sex: Female
  Weight: 78.996 kg

DRUGS (11)
  1. LETAIRIS [Suspect]
     Indication: PULMONARY ARTERIAL HYPERTENSION
     Route: 048
     Dates: start: 20070905
  2. REVATIO [Concomitant]
  3. LASIX [Concomitant]
  4. COUMADIN [Concomitant]
  5. LANOXIN [Concomitant]
  6. NEXIUM [Concomitant]
  7. OXYCODONE AND ACETAMINOPHEN [Concomitant]
  8. LUNESTA [Concomitant]
  9. PROMETHAZINE [Concomitant]
  10. ZYRTEC [Concomitant]
  11. SINGULAIR [Concomitant]

REACTIONS (1)
  - DEATH [None]
